FAERS Safety Report 8556737-6 (Version None)
Quarter: 2012Q3

REPORT INFORMATION
  Report Type: 
  Country: None (occurrence: None)
  Receive Date: 20120719
  Receipt Date: 20120704
  Transmission Date: 20120928
  Serious: Yes (Other)
  Sender: FDA-Public Use
  Company Number: TPG2011A03219

PATIENT
  Age: 42 Month
  Sex: Male

DRUGS (13)
  1. VICTOZA [Concomitant]
  2. LUCENTIS (RANISIZUMAB) [Concomitant]
  3. BERLINSULIN H NORMAL(INSULIN) [Concomitant]
  4. SEVIKAR (OLMESTARTAN MEDOXOMIL) [Concomitant]
  5. PIOGLITAZONE HYDROCHLORIDE/METFORMIN HYDROCHLORIDE [Suspect]
     Indication: TYPE 2 DIABETES MELLITUS
     Dosage: PIOGLITAZONE/METFORMIN 15/850 MG, PER ORAL
     Route: 048
     Dates: start: 20080201
  6. LANTUS (INSULIN GLARAGINE) [Concomitant]
  7. ALLOPURINOL [Concomitant]
  8. REPAGLINIDE [Concomitant]
  9. ATORVASTATIN [Concomitant]
  10. XALATAN [Concomitant]
  11. COSOPT EYEDROPS (TIMOLOL MALAETE, DORZOLAMIDE HYDROCHLORIDE) [Concomitant]
  12. JODETTEN (POTASSIUM IODIDE) [Concomitant]
  13. SVIKAR (AMLODIPINE) [Concomitant]

REACTIONS (2)
  - DISEASE RECURRENCE [None]
  - RETINAL VEIN THROMBOSIS [None]
